FAERS Safety Report 9718714 (Version 1)
Quarter: 2013Q4

REPORT INFORMATION
  Report Type: Not Available
  Country: US (occurrence: US)
  Receive Date: 20131125
  Receipt Date: 20131125
  Transmission Date: 20140711
  Serious: No
  Sender: FDA-Public Use
  Company Number: US-H. LUNDBECK A/S-DKLU1092917

PATIENT
  Age: 22 Year
  Sex: Male

DRUGS (5)
  1. ONFI [Suspect]
     Indication: EPILEPSY
     Route: 048
     Dates: start: 201307
  2. ONFI [Suspect]
     Indication: AGGRESSION
     Route: 048
     Dates: start: 201307
  3. ONFI [Suspect]
     Indication: ANXIETY
  4. DEPAKENE [Concomitant]
     Indication: EPILEPSY
  5. LAMICTAL [Concomitant]
     Indication: EPILEPSY

REACTIONS (3)
  - Muscle twitching [Unknown]
  - Dyskinesia [Unknown]
  - Dermatitis acneiform [Unknown]
